FAERS Safety Report 21161200 (Version 1)
Quarter: 2022Q3

REPORT INFORMATION
  Report Type: Report from Study
  Country: IT (occurrence: IT)
  Receive Date: 20220802
  Receipt Date: 20220802
  Transmission Date: 20221027
  Serious: Yes (Other)
  Sender: FDA-Public Use
  Company Number: None

PATIENT
  Age: 62 Year
  Sex: Female

DRUGS (2)
  1. AMOXICILLIN [Suspect]
     Active Substance: AMOXICILLIN
     Indication: Pain in jaw
     Route: 065
     Dates: start: 20220613, end: 20220613
  2. IBUPROFEN ARGININE [Suspect]
     Active Substance: IBUPROFEN ARGININE
     Indication: Pain in jaw
     Route: 065
     Dates: start: 20220613, end: 20220613

REACTIONS (1)
  - Angioedema [Recovering/Resolving]

NARRATIVE: CASE EVENT DATE: 20220614
